FAERS Safety Report 16319173 (Version 1)
Quarter: 2019Q2

REPORT INFORMATION
  Report Type: Spontaneous
  Country: US (occurrence: US)
  Receive Date: 20190410
  Receipt Date: 20190410
  Transmission Date: 20190711
  Serious: No
  Sender: FDA-Public Use
  Company Number: None

PATIENT
  Sex: Female

DRUGS (2)
  1. PREZCOBIX [Suspect]
     Active Substance: COBICISTAT\DARUNAVIR ETHANOLATE
     Dosage: ?          OTHER DOSE:800/150MG;?
     Route: 048
     Dates: start: 20190126
  2. DESCOVY [Suspect]
     Active Substance: EMTRICITABINE\TENOFOVIR ALAFENAMIDE FUMARATE
     Dosage: ?          OTHER DOSE:200/25MG;?
     Route: 048
     Dates: start: 20190116

REACTIONS (3)
  - Nausea [None]
  - Diarrhoea [None]
  - Vomiting [None]
